FAERS Safety Report 12995150 (Version 2)
Quarter: 2016Q4

REPORT INFORMATION
  Report Type: Other
  Country: IT (occurrence: IT)
  Receive Date: 20161202
  Receipt Date: 20161214
  Transmission Date: 20170207
  Serious: Yes (Other)
  Sender: FDA-Public Use
  Company Number: IT-CELLTRION INC.-2016IT012605

PATIENT

DRUGS (16)
  1. METHOTREXATE. [Suspect]
     Active Substance: METHOTREXATE
     Indication: RHEUMATOID ARTHRITIS
     Dosage: 10 MG, 1/WEEK
     Route: 058
     Dates: start: 20160101, end: 20161123
  2. PALEXIA [Suspect]
     Active Substance: TAPENTADOL HYDROCHLORIDE
     Indication: RHEUMATOID ARTHRITIS
     Dosage: 300 MG, DAILY
     Route: 065
     Dates: start: 20160523, end: 20161123
  3. FOLIC ACID. [Concomitant]
     Active Substance: FOLIC ACID
     Dosage: 5 MG, UNK
  4. REMSIMA [Suspect]
     Active Substance: INFLIXIMAB
     Dosage: 300 MG, CYCLIC
     Route: 042
     Dates: start: 20161028, end: 20161028
  5. DELTACORTENE [Concomitant]
     Active Substance: PREDNISONE
     Dosage: 7.5 MG, UNK
  6. REMSIMA [Suspect]
     Active Substance: INFLIXIMAB
     Indication: RHEUMATOID ARTHRITIS
     Dosage: 300 MG, CYCLIC
     Route: 042
     Dates: start: 20161014, end: 20161014
  7. DICLOREUM (DICLOFENAC SODIUM) [Suspect]
     Active Substance: DICLOFENAC SODIUM
     Indication: RHEUMATOID ARTHRITIS
     Dosage: 150 MG, DAILY
     Route: 048
     Dates: start: 20161021, end: 20161123
  8. NOZINAN                            /00038601/ [Concomitant]
     Active Substance: LEVOMEPROMAZINE
     Dosage: 25 MG, UNK
  9. EUTIROX [Concomitant]
     Active Substance: LEVOTHYROXINE SODIUM
     Dosage: 100 MG, UNK
  10. CONTRAMAL [Concomitant]
     Active Substance: TRAMADOL HYDROCHLORIDE
     Dosage: 50 MG, UNK
  11. DIBASE [Concomitant]
     Active Substance: CHOLECALCIFEROL
     Dosage: 25 IU/2.5 ML, UNK
  12. EN [Concomitant]
     Active Substance: DELORAZEPAM
     Dosage: 1MG/ML, UNK
  13. SEROQUEL [Concomitant]
     Active Substance: QUETIAPINE FUMARATE
     Dosage: 25 MG, UNK
  14. LIVIAL [Concomitant]
     Active Substance: TIBOLONE
     Dosage: 5 MG, UNK
  15. BRINTELLIX [Concomitant]
     Active Substance: VORTIOXETINE HYDROBROMIDE
     Dosage: 5 MG, UNK
     Route: 048
  16. PANTOPRAZOLE [Concomitant]
     Active Substance: PANTOPRAZOLE SODIUM
     Dosage: 20 MG, UNK

REACTIONS (3)
  - Aspartate aminotransferase increased [Not Recovered/Not Resolved]
  - Drug interaction [Not Recovered/Not Resolved]
  - Alanine aminotransferase increased [Not Recovered/Not Resolved]

NARRATIVE: CASE EVENT DATE: 20161021
